FAERS Safety Report 19459636 (Version 2)
Quarter: 2021Q3

REPORT INFORMATION
  Report Type: Spontaneous
  Country: GB (occurrence: GB)
  Receive Date: 20210624
  Receipt Date: 20210924
  Transmission Date: 20211014
  Serious: Yes (Other)
  Sender: FDA-Public Use
  Company Number: GB-BRISTOL-MYERS SQUIBB COMPANY-BMS-2021-059247

PATIENT
  Sex: Male

DRUGS (2)
  1. OPDIVO [Suspect]
     Active Substance: NIVOLUMAB
     Indication: MALIGNANT MELANOMA
     Dosage: UNAVAILABLE
     Route: 065
     Dates: start: 20180308
  2. YERVOY [Suspect]
     Active Substance: IPILIMUMAB
     Indication: MALIGNANT MELANOMA
     Dosage: UNK
     Route: 065
     Dates: start: 20180308

REACTIONS (17)
  - Condition aggravated [Unknown]
  - Weight fluctuation [Unknown]
  - Fatigue [Unknown]
  - Hot flush [Unknown]
  - Sleep disorder [Unknown]
  - Muscle spasms [Unknown]
  - Pyrexia [Unknown]
  - Pruritus [Unknown]
  - Diarrhoea [Unknown]
  - Haematochezia [Unknown]
  - Weight decreased [Unknown]
  - Haemorrhage [Unknown]
  - Appetite disorder [Unknown]
  - Hyperhidrosis [Unknown]
  - Rash [Unknown]
  - Skin disorder [Unknown]
  - Dizziness [Unknown]
